FAERS Safety Report 5022327-5 (Version None)
Quarter: 2006Q2

REPORT INFORMATION
  Report Type: 
  Country: None (occurrence: None)
  Receive Date: 20060609
  Receipt Date: 20060516
  Transmission Date: 20061013
  Serious: Yes (Life-Threatening, Hospitalization)
  Sender: FDA-Public Use
  Company Number: JP-NOVOPROD-253512

PATIENT
  Age: 39 Year
  Sex: Female
  Weight: 44 kg

DRUGS (11)
  1. NOVORAPID CHU [Concomitant]
     Indication: DIABETES MELLITUS
  2. THYRADIN S [Concomitant]
     Dosage: 100 MG, UNK
     Route: 048
  3. ONEALFA [Concomitant]
     Route: 048
  4. CYANOCOBALAMIN [Concomitant]
     Dosage: 300 MG, UNK
     Route: 048
  5. URSO [Concomitant]
     Route: 048
  6. BAKTAR [Concomitant]
     Dosage: 20 MG, UNK
     Route: 048
  7. NOVOLIN N [Suspect]
     Indication: DIABETES MELLITUS
     Dosage: 6 U,
     Route: 058
     Dates: end: 20060505
  8. NOVOLIN R [Concomitant]
     Indication: DIABETES MELLITUS
     Dosage: 24 IU
     Route: 058
     Dates: start: 20050601
  9. ALESION [Concomitant]
     Route: 048
     Dates: start: 20060511
  10. CORTRIL [Concomitant]
     Route: 048
     Dates: start: 20060508
  11. ALLEGRA                            /01314202/ [Concomitant]
     Route: 048
     Dates: start: 20060509

REACTIONS (11)
  - BURNING SENSATION [None]
  - CHEST DISCOMFORT [None]
  - DRUG HYPERSENSITIVITY [None]
  - ERYTHEMA [None]
  - GLYCOSYLATED HAEMOGLOBIN INCREASED [None]
  - HOT FLUSH [None]
  - HYPOAESTHESIA ORAL [None]
  - INJECTION SITE ERYTHEMA [None]
  - INJECTION SITE INDURATION [None]
  - INJECTION SITE SWELLING [None]
  - SWELLING FACE [None]
